FAERS Safety Report 8077759-8 (Version None)
Quarter: 2012Q1

REPORT INFORMATION
  Report Type: 
  Country: None (occurrence: None)
  Receive Date: 20120127
  Receipt Date: 20120117
  Transmission Date: 20120608
  Serious: Yes (Hospitalization)
  Sender: FDA-Public Use
  Company Number: CA-ABBOTT-12P-028-0894925-00

PATIENT
  Sex: Female

DRUGS (20)
  1. DILTIAZEM HCL [Concomitant]
     Indication: HYPERTENSION
     Dates: start: 20091102
  2. ALENDRONATE SODIUM [Concomitant]
     Indication: OSTEOPOROSIS
     Dates: start: 20081222
  3. ATROVENT [Concomitant]
     Indication: DYSPNOEA
     Dates: start: 20110915
  4. ALBUTEROL SULFATE AUTOHALER [Concomitant]
     Indication: CHRONIC OBSTRUCTIVE PULMONARY DISEASE
     Dates: start: 20070621
  5. WARFARIN SODIUM [Concomitant]
     Indication: ATRIAL FIBRILLATION
     Dates: start: 20091125
  6. LETROZOLE [Concomitant]
     Indication: PROPHYLAXIS
     Dates: start: 20071213
  7. DIAZEPAM [Concomitant]
     Indication: ANXIETY
     Dates: start: 20090909
  8. SYNTHROID [Concomitant]
     Indication: HYPOTHYROIDISM
     Dates: start: 20100209
  9. AMIODARONE HCL [Concomitant]
     Indication: ATRIAL FIBRILLATION
     Dates: start: 20110817
  10. LETROZOLE [Concomitant]
     Indication: BREAST CANCER
  11. EFFEXOR [Concomitant]
     Indication: ANXIETY
     Dates: start: 20080709
  12. BISOPROLOL FUMARATE [Concomitant]
     Indication: HYPERTENSION
     Dates: start: 20110915
  13. HYDROXYCHLOROQUINE SULFATE [Concomitant]
     Indication: RHEUMATOID ARTHRITIS
     Dates: start: 20110916
  14. DYAZIDE [Concomitant]
     Indication: OEDEMA PERIPHERAL
     Dates: start: 20110915
  15. PERINDOPRIL (BLINDED) [Suspect]
     Indication: HYPERTENSION
     Route: 048
  16. OLANZAPINE [Concomitant]
     Indication: ANXIETY
     Dates: start: 20090728
  17. LORAZEPAM [Concomitant]
     Indication: ANXIETY
     Dates: start: 20070919
  18. PERCOCET [Concomitant]
     Indication: PAIN
     Dates: start: 20090630
  19. METHOTREXATE [Concomitant]
     Indication: RHEUMATOID ARTHRITIS
     Dates: start: 20110916
  20. FOLIC ACID [Concomitant]
     Indication: ROUTINE HEALTH MAINTENANCE
     Dates: start: 20110916

REACTIONS (4)
  - INTERNATIONAL NORMALISED RATIO INCREASED [None]
  - NEUTROPENIA [None]
  - LEUKOPENIA [None]
  - PNEUMONIA [None]
